FAERS Safety Report 8256443-1 (Version None)
Quarter: 2012Q1

REPORT INFORMATION
  Report Type: 
  Country: None (occurrence: None)
  Receive Date: 20120330
  Receipt Date: 20120319
  Transmission Date: 20120608
  Serious: Yes (Other)
  Sender: FDA-Public Use
  Company Number: 2012MA003621

PATIENT
  Age: 10 Year
  Sex: Male

DRUGS (10)
  1. FLUDARABINE PHOSPHATE [Suspect]
     Indication: STEM CELL TRANSPLANT
     Dosage: 180 MG/M**2
  2. CYCLOPHOSPHAMIDE [Suspect]
     Indication: STEM CELL TRANSPLANT
     Dosage: 120 MG/KG
  3. TACROLIMUS [Concomitant]
  4. VANCOMYCIN [Concomitant]
  5. TRIMETHOPRIM + SULFAMETHOXAZOLE [Concomitant]
  6. INTERFERON Y [Concomitant]
  7. ANTI-THYMOCYTE GLOBULIN NOS [Suspect]
     Indication: STEM CELL TRANSPLANT
     Dosage: 8 MG/KG
  8. CYCLOSPORINE [Concomitant]
  9. CLINDAMYCIN [Concomitant]
  10. METHOTREXATE [Concomitant]

REACTIONS (12)
  - HEPATIC FAILURE [None]
  - OSTEOPOROSIS [None]
  - GRAFT VERSUS HOST DISEASE IN INTESTINE [None]
  - GRAFT VERSUS HOST DISEASE IN SKIN [None]
  - CYTOMEGALOVIRUS TEST POSITIVE [None]
  - GRAFT VERSUS HOST DISEASE IN LIVER [None]
  - PANCREATITIS ACUTE [None]
  - DRY EYE [None]
  - LIVER TRANSPLANT [None]
  - BODY HEIGHT BELOW NORMAL [None]
  - HYPERLIPIDAEMIA [None]
  - LIVER ABSCESS [None]
